FAERS Safety Report 8859123 (Version 1)
Quarter: 2012Q4

REPORT INFORMATION
  Report Type: Spontaneous
  Country: US (occurrence: None)
  Receive Date: 20121024
  Receipt Date: 20121024
  Transmission Date: 20130627
  Serious: Yes (Hospitalization)
  Sender: FDA-Public Use
  Company Number: None

PATIENT
  Sex: Male

DRUGS (1)
  1. FORTEO 20MCG LILLY [Suspect]
     Indication: OSTEOPOROSIS
     Dosage: 20mcg daily sq
     Route: 058
     Dates: start: 20121009, end: 20121009

REACTIONS (2)
  - Hypersensitivity [None]
  - Paraesthesia oral [None]
